FAERS Safety Report 8794397 (Version 1)
Quarter: 2012Q4

REPORT INFORMATION
  Report Type: 
  Country: US (occurrence: US)
  Receive Date: 20120917
  Receipt Date: 20120917
  Transmission Date: 20130627
  Serious: Yes (Other)
  Sender: FDA-Public Use
  Company Number: PHEH2012US017768

PATIENT
  Sex: Female

DRUGS (2)
  1. VIVELLE DOT [Suspect]
  2. PREVACID [Concomitant]

REACTIONS (8)
  - Multiple sclerosis [Unknown]
  - Dysstasia [Unknown]
  - Visual impairment [Unknown]
  - Muscular weakness [Unknown]
  - Dyspnoea [Unknown]
  - Abdominal pain upper [Unknown]
  - Hyperhidrosis [Unknown]
  - Cold sweat [Unknown]
